FAERS Safety Report 23694941 (Version 1)
Quarter: 2024Q2

REPORT INFORMATION
  Report Type: Spontaneous
  Country: US (occurrence: US)
  Receive Date: 20240402
  Receipt Date: 20240402
  Transmission Date: 20240716
  Serious: Yes (Death, Other)
  Sender: FDA-Public Use
  Company Number: US-AMGEN-USASP2024062819

PATIENT

DRUGS (1)
  1. XGEVA [Suspect]
     Active Substance: DENOSUMAB
     Indication: Prophylaxis
     Dosage: UNK
     Route: 065

REACTIONS (6)
  - Death [Fatal]
  - Fracture [Unknown]
  - Squamous cell carcinoma of the tongue [Unknown]
  - Radial nerve palsy [Unknown]
  - Renal cell carcinoma [Unknown]
  - Hypoaesthesia [Unknown]
